FAERS Safety Report 10205999 (Version 1)
Quarter: 2014Q2

REPORT INFORMATION
  Report Type: Spontaneous
  Country: US (occurrence: None)
  Receive Date: 20140527
  Receipt Date: 20140527
  Transmission Date: 20141212
  Serious: Yes (Life-Threatening)
  Sender: FDA-Public Use
  Company Number: None

PATIENT
  Age: 60 Year
  Sex: Male
  Weight: 100.7 kg

DRUGS (1)
  1. DEPO TESTOSTERONE [Suspect]
     Indication: BLOOD TESTOSTERONE DECREASED
     Dosage: 6 SHOTS, ONCE DAILY, INTO THE MUSCLE
     Dates: start: 20140214, end: 20140430

REACTIONS (9)
  - Anaphylactic reaction [None]
  - Pruritus [None]
  - Skin burning sensation [None]
  - Anxiety [None]
  - Personality change [None]
  - Headache [None]
  - Paraesthesia [None]
  - Muscular weakness [None]
  - Nervous system disorder [None]
